FAERS Safety Report 6023500-X (Version None)
Quarter: 2008Q4

REPORT INFORMATION
  Report Type: 
  Country: None (occurrence: None)
  Receive Date: 20081230
  Receipt Date: 20081219
  Transmission Date: 20090506
  Serious: Yes (Death, Other)
  Sender: FDA-Public Use
  Company Number: CA-MERCK-0812CAN00096

PATIENT

DRUGS (6)
  1. FOSAMAX [Suspect]
     Indication: POSTMENOPAUSE
     Route: 048
     Dates: start: 20060401, end: 20071201
  2. FOSAMAX [Suspect]
     Indication: BONE DENSITY DECREASED
     Route: 048
     Dates: start: 20060401, end: 20071201
  3. PLACEBO (UNSPECIFIED) [Concomitant]
     Indication: POSTMENOPAUSE
     Route: 051
     Dates: start: 20060401, end: 20071201
  4. PLACEBO (UNSPECIFIED) [Concomitant]
     Indication: BONE DENSITY DECREASED
     Route: 051
     Dates: start: 20060401, end: 20071201
  5. CALCIUM (UNSPECIFIED) [Concomitant]
     Route: 065
  6. VITAMIN D (UNSPECIFIED) [Concomitant]
     Route: 065

REACTIONS (10)
  - ABSCESS LIMB [None]
  - ARTHRALGIA [None]
  - BREAST CANCER [None]
  - INFECTED CYST [None]
  - METASTATIC NEOPLASM [None]
  - OVARIAN CANCER RECURRENT [None]
  - PNEUMONIA [None]
  - SMALL CELL LUNG CANCER METASTATIC [None]
  - UPPER RESPIRATORY TRACT INFECTION [None]
  - VAGINAL NEOPLASM [None]
